FAERS Safety Report 20866848 (Version 2)
Quarter: 2022Q2

REPORT INFORMATION
  Report Type: Spontaneous
  Country: US (occurrence: US)
  Receive Date: 20220524
  Receipt Date: 20220602
  Transmission Date: 20220720
  Serious: No
  Sender: FDA-Public Use
  Company Number: US-TEVA-2022-US-2032629

PATIENT
  Sex: Female

DRUGS (2)
  1. CLONAZEPAM [Suspect]
     Active Substance: CLONAZEPAM
     Indication: Neuropathy peripheral
     Dosage: 0.5 MG
     Route: 065
     Dates: start: 202204
  2. CLONAZEPAM [Suspect]
     Active Substance: CLONAZEPAM
     Indication: Oral pain

REACTIONS (4)
  - Stomatitis [Unknown]
  - Oral discomfort [Recovered/Resolved with Sequelae]
  - Product prescribing issue [Unknown]
  - Wrong technique in product usage process [Unknown]
